FAERS Safety Report 6632979-1 (Version None)
Quarter: 2010Q1

REPORT INFORMATION
  Report Type: 
  Country: None (occurrence: None)
  Receive Date: 20100312
  Receipt Date: 20100302
  Transmission Date: 20100710
  Serious: Yes (Other)
  Sender: FDA-Public Use
  Company Number: US-ABBOTT-10P-163-0629968-00

PATIENT
  Sex: Male
  Weight: 95.34 kg

DRUGS (6)
  1. NIASPAN [Suspect]
     Indication: HIGH DENSITY LIPOPROTEIN DECREASED
     Dates: start: 19910101, end: 19910101
  2. NIASPAN [Suspect]
     Indication: BLOOD TRIGLYCERIDES INCREASED
     Dates: start: 19910101, end: 19910101
  3. NIASPAN [Suspect]
     Dates: start: 19930101
  4. LIPITOR [Concomitant]
     Indication: HIGH DENSITY LIPOPROTEIN DECREASED
  5. ASPIRIN [Concomitant]
     Indication: DRUG USE FOR UNKNOWN INDICATION
  6. MULTI-VITAMIN [Concomitant]
     Indication: DRUG USE FOR UNKNOWN INDICATION

REACTIONS (4)
  - ABDOMINAL PAIN [None]
  - ARTHRALGIA [None]
  - CHEST PAIN [None]
  - FLUSHING [None]
